FAERS Safety Report 9487372 (Version 1)
Quarter: 2013Q3

REPORT INFORMATION
  Report Type: Spontaneous
  Country: US (occurrence: US)
  Receive Date: 20130829
  Receipt Date: 20130829
  Transmission Date: 20140515
  Serious: Yes (Other)
  Sender: FDA-Public Use
  Company Number: US-ASTRAZENECA-2013SE64913

PATIENT
  Age: 71 Year
  Sex: Female
  Weight: 74.4 kg

DRUGS (10)
  1. NEXIUM [Suspect]
     Indication: GASTROOESOPHAGEAL REFLUX DISEASE
     Route: 048
     Dates: start: 2008
  2. PRILOSEC [Suspect]
     Indication: GASTROOESOPHAGEAL REFLUX DISEASE
     Route: 048
  3. OMEPRAZOLE OTC [Suspect]
     Indication: GASTROOESOPHAGEAL REFLUX DISEASE
     Route: 048
  4. RANITIDINE [Concomitant]
     Indication: DYSPEPSIA
     Route: 048
     Dates: start: 201307
  5. B12 [Concomitant]
     Indication: ANAEMIA
  6. IRON PILL [Concomitant]
     Indication: ANAEMIA
     Route: 048
  7. CALCIUM PILLS [Concomitant]
     Route: 048
  8. LEVEMIR [Concomitant]
     Indication: DIABETES MELLITUS
     Dosage: ONE INJECTION DAILY
     Route: 058
  9. LEVOTHYROXINE [Concomitant]
     Indication: THYROID DISORDER
     Dosage: DAILY
     Route: 048
  10. CORTISONE [Concomitant]
     Indication: EXOSTOSIS
     Dosage: ONE INJECTION BIWK
     Route: 058

REACTIONS (20)
  - Heart rate irregular [Not Recovered/Not Resolved]
  - Myocardial infarction [Recovered/Resolved]
  - Neoplasm [Not Recovered/Not Resolved]
  - Pharyngeal neoplasm [Unknown]
  - Polyp [Not Recovered/Not Resolved]
  - Albumin urine present [Recovered/Resolved]
  - Asthenia [Not Recovered/Not Resolved]
  - Fatigue [Not Recovered/Not Resolved]
  - Chronic fatigue syndrome [Not Recovered/Not Resolved]
  - Fibromyalgia [Not Recovered/Not Resolved]
  - Nervousness [Not Recovered/Not Resolved]
  - Exostosis [Not Recovered/Not Resolved]
  - Adverse event [Not Recovered/Not Resolved]
  - Herpes zoster [Recovered/Resolved]
  - Blood glucose decreased [Not Recovered/Not Resolved]
  - Gait disturbance [Not Recovered/Not Resolved]
  - Blood urine present [Unknown]
  - Blood pressure abnormal [Unknown]
  - Migraine [Not Recovered/Not Resolved]
  - Intentional drug misuse [Recovered/Resolved]
